FAERS Safety Report 13637476 (Version 2)
Quarter: 2020Q2

REPORT INFORMATION
  Report Type: Spontaneous
  Country: US (occurrence: US)
  Receive Date: 20170609
  Receipt Date: 20200525
  Transmission Date: 20200713
  Serious: Yes (Death, Hospitalization, Other)
  Sender: FDA-Public Use
  Company Number: US-009507513-1706USA004180

PATIENT
  Sex: Female
  Weight: 142.86 kg

DRUGS (2)
  1. JANUVIA [Suspect]
     Active Substance: SITAGLIPTIN PHOSPHATE
     Dosage: 100 MILLIGRAM, ONCE DAILY
     Dates: start: 20120426, end: 20130806
  2. METFORMIN [Concomitant]
     Active Substance: METFORMIN HYDROCHLORIDE
     Indication: DIABETES MELLITUS
     Dosage: UNK

REACTIONS (4)
  - Hepatic cancer [Unknown]
  - Pancreatic carcinoma [Fatal]
  - Blood glucose abnormal [Unknown]
  - Gastrointestinal surgery [Unknown]

NARRATIVE: CASE EVENT DATE: 2013
